FAERS Safety Report 18622445 (Version 1)
Quarter: 2020Q4

REPORT INFORMATION
  Report Type: Spontaneous
  Country: US (occurrence: US)
  Receive Date: 20201215
  Receipt Date: 20201215
  Transmission Date: 20210114
  Serious: Yes (Hospitalization)
  Sender: FDA-Public Use
  Company Number: None

PATIENT
  Age: 30 Year
  Sex: Female
  Weight: 51.75 kg

DRUGS (1)
  1. XEOMIN [Suspect]
     Active Substance: INCOBOTULINUMTOXINA
     Indication: SKIN COSMETIC PROCEDURE
     Route: 058
     Dates: start: 20201106, end: 20201106

REACTIONS (14)
  - Panic attack [None]
  - Dry eye [None]
  - Eyelid disorder [None]
  - Photophobia [None]
  - Dizziness [None]
  - Lid sulcus deepened [None]
  - Migraine [None]
  - Alopecia [None]
  - Vision blurred [None]
  - Dysarthria [None]
  - Feeling abnormal [None]
  - Headache [None]
  - Muscle atrophy [None]
  - Anxiety [None]

NARRATIVE: CASE EVENT DATE: 20201106
